FAERS Safety Report 4828240-8 (Version None)
Quarter: 2005Q4

REPORT INFORMATION
  Report Type: 
  Country: None (occurrence: None)
  Receive Date: 20051115
  Receipt Date: 20050520
  Transmission Date: 20060501
  Serious: No
  Sender: FDA-Public Use
  Company Number: US-BRISTOL-MYERS SQUIBB COMPANY-12977138

PATIENT
  Sex: Male

DRUGS (2)
  1. SUSTIVA [Suspect]
  2. COMBIVIR [Concomitant]

REACTIONS (4)
  - DIZZINESS [None]
  - EOSINOPHILIC PUSTULAR FOLLICULITIS [None]
  - PRURITUS [None]
  - SLEEP DISORDER [None]
